FAERS Safety Report 6793417-1 (Version None)
Quarter: 2010Q2

REPORT INFORMATION
  Report Type: 
  Country: None (occurrence: None)
  Receive Date: 20100624
  Receipt Date: 20100326
  Transmission Date: 20101027
  Serious: Yes (Other)
  Sender: FDA-Public Use
  Company Number: US-MYLANLABS-2010S1002961

PATIENT
  Age: 53 Year
  Sex: Male
  Weight: 56.7 kg

DRUGS (7)
  1. CLOZAPINE [Suspect]
     Indication: SCHIZOPHRENIA
     Route: 048
     Dates: start: 20091224, end: 20100301
  2. CLOZAPINE [Suspect]
     Route: 048
     Dates: start: 20091224, end: 20100301
  3. CLOZAPINE [Suspect]
     Route: 048
     Dates: end: 20100301
  4. RISPERDAL [Suspect]
     Indication: SCHIZOPHRENIA
     Route: 048
     Dates: start: 20091124, end: 20100303
  5. ASPIRIN [Concomitant]
     Dates: start: 20091001
  6. BENZTROPINE MESYLATE [Concomitant]
     Dates: start: 20091001
  7. DEPAKOTE ER [Concomitant]
     Dates: start: 20091024

REACTIONS (2)
  - GRANULOCYTOPENIA [None]
  - LEUKOPENIA [None]
